FAERS Safety Report 5022028-3 (Version None)
Quarter: 2006Q2

REPORT INFORMATION
  Report Type: 
  Country: None (occurrence: None)
  Receive Date: 20060605
  Receipt Date: 20060525
  Transmission Date: 20061013
  Serious: Yes (Other)
  Sender: FDA-Public Use
  Company Number: 2006068651

PATIENT
  Age: 20 Year
  Sex: Male
  Weight: 181.4388 kg

DRUGS (1)
  1. FRESHBURST LISTERINE (MENTHOL, METHYL SALICYLATE, EUCALYPTOL, THYMOL) [Suspect]
     Indication: DEPRESSED MOOD
     Dosage: 2 MOUTHFULS ONCE A DAY, ORAL
     Route: 048
     Dates: start: 20060401

REACTIONS (1)
  - INTENTIONAL DRUG MISUSE [None]
